FAERS Safety Report 10477660 (Version 3)
Quarter: 2014Q4

REPORT INFORMATION
  Report Type: Spontaneous
  Country: US (occurrence: US)
  Receive Date: 20140926
  Receipt Date: 20141029
  Transmission Date: 20150528
  Serious: Yes (Other)
  Sender: FDA-Public Use
  Company Number: US-BEH-2014045141

PATIENT
  Sex: Female
  Weight: 45 kg

DRUGS (2)
  1. ZEMAIRA [Suspect]
     Active Substance: .ALPHA.1-PROTEINASE INHIBITOR HUMAN
  2. DRUGS USED IN NICOTINE DEPENDENCE [Suspect]
     Active Substance: UNSPECIFIED INGREDIENT

REACTIONS (5)
  - Heart rate irregular [Unknown]
  - Myocardial infarction [Recovered/Resolved]
  - Productive cough [Unknown]
  - Lung disorder [Unknown]
  - Paraesthesia [Recovered/Resolved]
